FAERS Safety Report 5228479-6 (Version None)
Quarter: 2007Q1

REPORT INFORMATION
  Report Type: 
  Country: None (occurrence: None)
  Receive Date: 20070205
  Receipt Date: 20070129
  Transmission Date: 20070707
  Serious: Yes (Other)
  Sender: FDA-Public Use
  Company Number: FR-AVENTIS-200710336FR

PATIENT
  Sex: Female

DRUGS (1)
  1. BIRODOGYL [Suspect]
     Route: 048
     Dates: start: 20061220, end: 20061223

REACTIONS (1)
  - THROMBOCYTOPENIA [None]
